FAERS Safety Report 7903468-9 (Version None)
Quarter: 2011Q4

REPORT INFORMATION
  Report Type: 
  Country: None (occurrence: None)
  Receive Date: 20111109
  Receipt Date: 20111101
  Transmission Date: 20120403
  Serious: Yes (Life-Threatening)
  Sender: FDA-Public Use
  Company Number: JP-JNJFOC-20111012586

PATIENT
  Age: 63 Year
  Sex: Male
  Weight: 65 kg

DRUGS (6)
  1. PENTASA [Concomitant]
  2. COLCHICINE [Concomitant]
     Route: 048
  3. CEFAZOLIN SODIUM [Concomitant]
     Route: 048
  4. REMICADE [Suspect]
     Dosage: 12 INFUSIONS ON UNKNOWN DATES
     Route: 042
     Dates: start: 20110922
  5. ELENTAL [Concomitant]
     Route: 048
  6. REMICADE [Suspect]
     Indication: BEHCET'S SYNDROME
     Route: 042
     Dates: start: 20091204

REACTIONS (1)
  - PANCREATIC CARCINOMA [None]
